FAERS Safety Report 7423511-3 (Version None)
Quarter: 2011Q2

REPORT INFORMATION
  Report Type: 
  Country: None (occurrence: None)
  Receive Date: 20110419
  Receipt Date: 20110412
  Transmission Date: 20111010
  Serious: Yes (Death)
  Sender: FDA-Public Use
  Company Number: PHHY2011DE20113

PATIENT
  Age: 86 Year
  Sex: Female

DRUGS (6)
  1. LEPONEX [Suspect]
     Dosage: 0.5-0.25-0.25
     Route: 048
     Dates: start: 20091008
  2. RAMIPRIL [Concomitant]
  3. LEPONEX [Suspect]
     Dosage: 100 MG, UNK
     Route: 048
  4. MELPERONE [Concomitant]
     Dosage: 10 ML, UNK
  5. ASS ^CT-ARZNEIMITTEL^ [Concomitant]
  6. OMEPRAZOLE [Concomitant]

REACTIONS (2)
  - CARDIAC FAILURE [None]
  - SOMNOLENCE [None]
